FAERS Safety Report 4960590-7 (Version None)
Quarter: 2006Q2

REPORT INFORMATION
  Report Type: 
  Country: None (occurrence: None)
  Receive Date: 20060403
  Receipt Date: 20050812
  Transmission Date: 20061013
  Serious: Yes (Hospitalization)
  Sender: FDA-Public Use
  Company Number: US-MERCK-0508USA02634

PATIENT
  Age: 65 Year
  Sex: Female
  Weight: 79 kg

DRUGS (11)
  1. VIOXX [Suspect]
     Indication: ARTHRITIS
     Route: 048
     Dates: start: 20000101, end: 20020101
  2. VIOXX [Suspect]
     Route: 048
     Dates: start: 20021105, end: 20040801
  3. FOSAMAX [Concomitant]
     Indication: OSTEOPOROSIS
     Route: 065
     Dates: start: 20010306
  4. DEPAKOTE [Concomitant]
     Indication: MIGRAINE WITHOUT AURA
     Route: 048
     Dates: start: 20010314
  5. DARVOCET [Concomitant]
     Indication: HEADACHE
     Route: 048
     Dates: start: 20010314
  6. THYROLAR [Concomitant]
     Indication: HYPOTHYROIDISM
     Route: 047
     Dates: end: 20040406
  7. VERAPAMIL [Concomitant]
     Route: 048
  8. CALCIUM (UNSPECIFIED) [Concomitant]
     Route: 048
  9. VITAMINS (UNSPECIFIED) [Concomitant]
     Route: 065
  10. ATACAND HCT [Concomitant]
     Route: 065
  11. IMITREX [Concomitant]
     Indication: HEADACHE
     Route: 065

REACTIONS (23)
  - BRONCHITIS [None]
  - DEEP VEIN THROMBOSIS [None]
  - DEPRESSION [None]
  - DRUG INTOLERANCE [None]
  - DYSPAREUNIA [None]
  - FALL [None]
  - FEMUR FRACTURE [None]
  - HYPERLIPIDAEMIA [None]
  - HYPERTENSION [None]
  - HYPOTHYROIDISM [None]
  - INJECTION SITE THROMBOSIS [None]
  - LEUKOPENIA [None]
  - MACULAR DEGENERATION [None]
  - MUSCLE SPASMS [None]
  - MUSCULOSKELETAL CHEST PAIN [None]
  - OBESITY [None]
  - OESOPHAGITIS [None]
  - OSTEOPOROSIS [None]
  - PETECHIAE [None]
  - RHINITIS ALLERGIC [None]
  - THROMBOCYTOPENIA [None]
  - THROMBOPHLEBITIS [None]
  - UPPER RESPIRATORY TRACT INFECTION [None]
